FAERS Safety Report 18107185 (Version 1)
Quarter: 2020Q3

REPORT INFORMATION
  Report Type: Spontaneous
  Country: US (occurrence: US)
  Receive Date: 20200804
  Receipt Date: 20200804
  Transmission Date: 20201103
  Serious: No
  Sender: FDA-Public Use
  Company Number: US-DRREDDYS-USA/USA/20/0125466

PATIENT
  Sex: Male

DRUGS (1)
  1. FEXOFENADINE HCL [Suspect]
     Active Substance: FEXOFENADINE HYDROCHLORIDE
     Indication: ARTHROPOD STING
     Route: 048
     Dates: start: 20200728

REACTIONS (2)
  - Product use in unapproved indication [Unknown]
  - Extra dose administered [Recovering/Resolving]

NARRATIVE: CASE EVENT DATE: 20200728
